FAERS Safety Report 5598812-4 (Version None)
Quarter: 2008Q1

REPORT INFORMATION
  Report Type: 
  Country: None (occurrence: None)
  Receive Date: 20080122
  Receipt Date: 20080111
  Transmission Date: 20080703
  Serious: Yes (Hospitalization, Disabling, Other)
  Sender: FDA-Public Use
  Company Number: US-ELI_LILLY_AND_COMPANY-US200701003809

PATIENT
  Sex: Female

DRUGS (8)
  1. FORTEO [Suspect]
     Indication: OSTEOPOROSIS
     Dosage: 20 UG, DAILY (1/D)
     Dates: start: 20060823
  2. FORTEO [Suspect]
     Dosage: 20 UG, DAILY (1/D)
  3. FORTEO [Suspect]
     Dosage: 20 UG, DAILY (1/D)
  4. TOPROL-XL [Concomitant]
     Indication: BLOOD PRESSURE
     Dosage: 12.5 MG, DAILY (1/D)
  5. TOPROL-XL [Concomitant]
     Dosage: 25 MG, DAILY (1/D)
     Dates: start: 20061101
  6. PROTONIX [Concomitant]
     Indication: NAUSEA
  7. OXYCONTIN [Concomitant]
     Indication: PAIN
  8. NEXIUM [Concomitant]

REACTIONS (10)
  - ADVERSE DRUG REACTION [None]
  - ASTHENIA [None]
  - BLOOD PRESSURE INCREASED [None]
  - DEEP VEIN THROMBOSIS [None]
  - FALL [None]
  - HAEMORRHAGE [None]
  - HUMERUS FRACTURE [None]
  - LIMB IMMOBILISATION [None]
  - OEDEMA PERIPHERAL [None]
  - PULMONARY EMBOLISM [None]
